FAERS Safety Report 9401255 (Version 2)
Quarter: 2013Q3

REPORT INFORMATION
  Report Type: Spontaneous
  Country: CO (occurrence: CO)
  Receive Date: 20130715
  Receipt Date: 20130828
  Transmission Date: 20140515
  Serious: Yes (Death)
  Sender: FDA-Public Use
  Company Number: CO-PFIZER INC-2013205114

PATIENT
  Age: 78 Year
  Sex: Male

DRUGS (5)
  1. LYRICA [Suspect]
     Indication: PLASMA CELL MYELOMA
     Dosage: 75 MG, 1X/DAY
     Route: 048
     Dates: start: 2012
  2. LOSARTAN [Concomitant]
     Indication: HYPERTENSION
     Dosage: 100 MG, 1X/DAY
     Route: 048
     Dates: start: 1993
  3. ACETAMINOPHEN [Concomitant]
     Indication: PAIN
     Dosage: 500 MG, 1X/DAY
     Route: 048
     Dates: start: 2010
  4. THALIDOMIDE [Concomitant]
     Indication: BONE CANCER
     Dosage: UNK
     Route: 048
     Dates: start: 2010
  5. OXYCODONE [Concomitant]
     Indication: BONE CANCER
     Dosage: 10 MG, 1X/DAY
     Route: 048
     Dates: start: 2010

REACTIONS (2)
  - Off label use [Fatal]
  - Bone cancer [Fatal]
